FAERS Safety Report 12830962 (Version 2)
Quarter: 2016Q4

REPORT INFORMATION
  Report Type: Report from Study
  Country: CN (occurrence: CN)
  Receive Date: 20161007
  Receipt Date: 20161106
  Transmission Date: 20170207
  Serious: No
  Sender: FDA-Public Use
  Company Number: CN-ASTRAZENECA-2016SF04783

PATIENT
  Age: 17849 Day
  Sex: Female

DRUGS (85)
  1. CIMETIDINE [Concomitant]
     Active Substance: CIMETIDINE
     Indication: GASTRIC PH DECREASED
     Route: 042
     Dates: start: 20160603, end: 20160603
  2. CIMETIDINE [Concomitant]
     Active Substance: CIMETIDINE
     Indication: ANTIALLERGIC THERAPY
     Route: 042
     Dates: start: 20160708, end: 20160708
  3. DIPHENHYDRAMINE HYDROCHLORIDE. [Concomitant]
     Active Substance: DIPHENHYDRAMINE HYDROCHLORIDE
     Indication: ANTIALLERGIC THERAPY
     Route: 030
     Dates: start: 20160624, end: 20160624
  4. DIPHENHYDRAMINE HYDROCHLORIDE. [Concomitant]
     Active Substance: DIPHENHYDRAMINE HYDROCHLORIDE
     Indication: ANTIALLERGIC THERAPY
     Route: 030
     Dates: start: 20160708, end: 20160708
  5. DIPHENHYDRAMINE HYDROCHLORIDE. [Concomitant]
     Active Substance: DIPHENHYDRAMINE HYDROCHLORIDE
     Indication: ANTIALLERGIC THERAPY
     Route: 030
     Dates: start: 20160902, end: 20160902
  6. DIPHENHYDRAMINE HYDROCHLORIDE. [Concomitant]
     Active Substance: DIPHENHYDRAMINE HYDROCHLORIDE
     Indication: ANTIALLERGIC THERAPY
     Route: 030
     Dates: start: 20160923, end: 20160923
  7. TANDOSPIRONE CITRATE [Concomitant]
     Active Substance: TANDOSPIRONE CITRATE
     Indication: ANXIETY
     Route: 048
  8. DEXAMETHASONE. [Concomitant]
     Active Substance: DEXAMETHASONE
     Indication: ANTIALLERGIC THERAPY
     Route: 048
     Dates: start: 20160819, end: 20160819
  9. TROPISETRON HYDROCHLORIDE [Concomitant]
     Active Substance: TROPISETRON HYDROCHLORIDE
     Indication: VOMITING
     Route: 042
     Dates: start: 20160617, end: 20160617
  10. TROPISETRON HYDROCHLORIDE [Concomitant]
     Active Substance: TROPISETRON HYDROCHLORIDE
     Indication: VOMITING
     Route: 042
     Dates: start: 20160708, end: 20160708
  11. TROPISETRON HYDROCHLORIDE [Concomitant]
     Active Substance: TROPISETRON HYDROCHLORIDE
     Indication: VOMITING
     Route: 042
     Dates: start: 20160715, end: 20160715
  12. DEXAMETHASONE SODIUM PHOSPHATE. [Concomitant]
     Active Substance: DEXAMETHASONE SODIUM PHOSPHATE
     Indication: ANTIALLERGIC THERAPY
     Route: 042
     Dates: start: 20160603, end: 20160603
  13. DEXAMETHASONE SODIUM PHOSPHATE. [Concomitant]
     Active Substance: DEXAMETHASONE SODIUM PHOSPHATE
     Indication: ANTIALLERGIC THERAPY
     Route: 042
     Dates: start: 20160617, end: 20160617
  14. DEXAMETHASONE SODIUM PHOSPHATE. [Concomitant]
     Active Substance: DEXAMETHASONE SODIUM PHOSPHATE
     Indication: ANTIALLERGIC THERAPY
     Route: 042
     Dates: start: 20160715, end: 20160715
  15. DEXAMETHASONE SODIUM PHOSPHATE. [Concomitant]
     Active Substance: DEXAMETHASONE SODIUM PHOSPHATE
     Indication: ANTIALLERGIC THERAPY
     Route: 042
     Dates: start: 20160902, end: 20160902
  16. DEXAMETHASONE SODIUM PHOSPHATE. [Concomitant]
     Active Substance: DEXAMETHASONE SODIUM PHOSPHATE
     Indication: ANTIALLERGIC THERAPY
     Route: 042
     Dates: start: 20160909, end: 20160909
  17. CIMETIDINE [Concomitant]
     Active Substance: CIMETIDINE
     Indication: ANTIALLERGIC THERAPY
     Route: 042
     Dates: start: 20160624, end: 20160624
  18. DIPHENHYDRAMINE HYDROCHLORIDE. [Concomitant]
     Active Substance: DIPHENHYDRAMINE HYDROCHLORIDE
     Indication: ANTIALLERGIC THERAPY
     Route: 030
     Dates: start: 20160805, end: 20160805
  19. PACLITAXEL. [Suspect]
     Active Substance: PACLITAXEL
     Indication: NEOPLASM
     Route: 042
     Dates: start: 20160708, end: 20160708
  20. PACLITAXEL. [Suspect]
     Active Substance: PACLITAXEL
     Indication: NEOPLASM
     Route: 042
     Dates: start: 20160805, end: 20160805
  21. DIYU SHENGBAIPIAN [Concomitant]
     Indication: LEUKOPENIA
     Route: 048
  22. DEXAMETHASONE. [Concomitant]
     Active Substance: DEXAMETHASONE
     Indication: ANTIALLERGIC THERAPY
     Route: 048
     Dates: start: 20160715, end: 20160715
  23. CIMETIDINE [Concomitant]
     Active Substance: CIMETIDINE
     Indication: GASTRIC PH DECREASED
     Route: 042
     Dates: start: 20160624, end: 20160624
  24. CIMETIDINE [Concomitant]
     Active Substance: CIMETIDINE
     Indication: GASTRIC PH DECREASED
     Route: 042
     Dates: start: 20160930, end: 20160930
  25. AZD2281 [Suspect]
     Active Substance: OLAPARIB
     Indication: NEOPLASM
     Route: 048
     Dates: start: 20160526, end: 20160602
  26. PACLITAXEL. [Suspect]
     Active Substance: PACLITAXEL
     Indication: NEOPLASM
     Route: 042
     Dates: start: 20160819, end: 20160819
  27. PACLITAXEL. [Suspect]
     Active Substance: PACLITAXEL
     Indication: NEOPLASM
     Route: 042
     Dates: start: 20160930, end: 20160930
  28. DIYU SHENGBAIPIAN [Concomitant]
     Indication: NEUTROPENIA
     Route: 048
  29. DEXAMETHASONE SODIUM PHOSPHATE. [Concomitant]
     Active Substance: DEXAMETHASONE SODIUM PHOSPHATE
     Indication: ANTIALLERGIC THERAPY
     Route: 042
     Dates: start: 20160923, end: 20160923
  30. CIMETIDINE [Concomitant]
     Active Substance: CIMETIDINE
     Indication: ANTIALLERGIC THERAPY
     Route: 042
     Dates: start: 20160902, end: 20160902
  31. CIMETIDINE [Concomitant]
     Active Substance: CIMETIDINE
     Indication: ANTIALLERGIC THERAPY
     Route: 042
     Dates: start: 20160909, end: 20160909
  32. CIMETIDINE [Concomitant]
     Active Substance: CIMETIDINE
     Indication: GASTRIC PH DECREASED
     Route: 042
     Dates: start: 20160909, end: 20160909
  33. CIMETIDINE [Concomitant]
     Active Substance: CIMETIDINE
     Indication: ANTIALLERGIC THERAPY
     Route: 042
     Dates: start: 20160923, end: 20160923
  34. DEXAMETHASONE. [Concomitant]
     Active Substance: DEXAMETHASONE
     Indication: ANTIALLERGIC THERAPY
     Route: 048
     Dates: start: 20160923, end: 20160923
  35. TROPISETRON HYDROCHLORIDE [Concomitant]
     Active Substance: TROPISETRON HYDROCHLORIDE
     Indication: VOMITING
     Route: 042
     Dates: start: 20160819, end: 20160819
  36. TROPISETRON HYDROCHLORIDE [Concomitant]
     Active Substance: TROPISETRON HYDROCHLORIDE
     Indication: VOMITING
     Route: 042
     Dates: start: 20160930, end: 20160930
  37. DEXAMETHASONE SODIUM PHOSPHATE. [Concomitant]
     Active Substance: DEXAMETHASONE SODIUM PHOSPHATE
     Indication: ANTIALLERGIC THERAPY
     Route: 042
     Dates: start: 20160805, end: 20160805
  38. CIMETIDINE [Concomitant]
     Active Substance: CIMETIDINE
     Indication: ANTIALLERGIC THERAPY
     Route: 042
     Dates: start: 20160603, end: 20160603
  39. CIMETIDINE [Concomitant]
     Active Substance: CIMETIDINE
     Indication: ANTIALLERGIC THERAPY
     Route: 042
     Dates: start: 20160617, end: 20160617
  40. CIMETIDINE [Concomitant]
     Active Substance: CIMETIDINE
     Indication: GASTRIC PH DECREASED
     Route: 042
     Dates: start: 20160617, end: 20160617
  41. CIMETIDINE [Concomitant]
     Active Substance: CIMETIDINE
     Indication: ANTIALLERGIC THERAPY
     Route: 042
     Dates: start: 20160805, end: 20160805
  42. DIPHENHYDRAMINE HYDROCHLORIDE. [Concomitant]
     Active Substance: DIPHENHYDRAMINE HYDROCHLORIDE
     Indication: ANTIALLERGIC THERAPY
     Route: 030
     Dates: start: 20160819, end: 20160819
  43. AZD2281 [Suspect]
     Active Substance: OLAPARIB
     Indication: NEOPLASM
     Route: 048
     Dates: start: 20160603, end: 20160728
  44. AZD2281 [Suspect]
     Active Substance: OLAPARIB
     Indication: NEOPLASM
     Route: 048
     Dates: start: 20160805
  45. PACLITAXEL. [Suspect]
     Active Substance: PACLITAXEL
     Indication: NEOPLASM
     Dosage: 80MG/M2 IV OVER 1 HOUR ON DAYS 1,8,15 OF A 28-DAY CYCLE SHOULD BE GIVEN ONE HOUR AFTER THE OLAPARIB
     Route: 042
     Dates: start: 20160603, end: 20160603
  46. PACLITAXEL. [Suspect]
     Active Substance: PACLITAXEL
     Indication: NEOPLASM
     Route: 042
     Dates: start: 20160715, end: 20160715
  47. PACLITAXEL. [Suspect]
     Active Substance: PACLITAXEL
     Indication: NEOPLASM
     Route: 042
     Dates: start: 20160902, end: 20160902
  48. PACLITAXEL. [Suspect]
     Active Substance: PACLITAXEL
     Indication: NEOPLASM
     Route: 042
     Dates: start: 20160909, end: 20160909
  49. DEXAMETHASONE. [Concomitant]
     Active Substance: DEXAMETHASONE
     Indication: ANTIALLERGIC THERAPY
     Route: 048
     Dates: start: 20160603, end: 20160603
  50. DEXAMETHASONE. [Concomitant]
     Active Substance: DEXAMETHASONE
     Indication: ANTIALLERGIC THERAPY
     Route: 048
     Dates: start: 20160624, end: 20160624
  51. DEXAMETHASONE. [Concomitant]
     Active Substance: DEXAMETHASONE
     Indication: ANTIALLERGIC THERAPY
     Route: 048
     Dates: start: 20160930, end: 20160930
  52. TROPISETRON HYDROCHLORIDE [Concomitant]
     Active Substance: TROPISETRON HYDROCHLORIDE
     Indication: VOMITING
     Route: 042
     Dates: start: 20160624, end: 20160624
  53. TROPISETRON HYDROCHLORIDE [Concomitant]
     Active Substance: TROPISETRON HYDROCHLORIDE
     Indication: VOMITING
     Route: 042
     Dates: start: 20160805, end: 20160805
  54. TROPISETRON HYDROCHLORIDE [Concomitant]
     Active Substance: TROPISETRON HYDROCHLORIDE
     Indication: VOMITING
     Route: 042
     Dates: start: 20160909, end: 20160909
  55. DEXAMETHASONE SODIUM PHOSPHATE. [Concomitant]
     Active Substance: DEXAMETHASONE SODIUM PHOSPHATE
     Indication: ANTIALLERGIC THERAPY
     Route: 042
     Dates: start: 20160624, end: 20160624
  56. CIMETIDINE [Concomitant]
     Active Substance: CIMETIDINE
     Indication: GASTRIC PH DECREASED
     Route: 042
     Dates: start: 20160708, end: 20160708
  57. DIPHENHYDRAMINE HYDROCHLORIDE. [Concomitant]
     Active Substance: DIPHENHYDRAMINE HYDROCHLORIDE
     Indication: ANTIALLERGIC THERAPY
     Route: 030
     Dates: start: 20160930, end: 20160930
  58. PACLITAXEL. [Suspect]
     Active Substance: PACLITAXEL
     Indication: NEOPLASM
     Route: 042
     Dates: start: 20160617, end: 20160617
  59. PACLITAXEL. [Suspect]
     Active Substance: PACLITAXEL
     Indication: NEOPLASM
     Route: 042
     Dates: start: 20160923, end: 20160923
  60. CITALOPRAM HYDROBROMIDE. [Concomitant]
     Active Substance: CITALOPRAM HYDROBROMIDE
     Indication: DEPRESSION
     Route: 048
  61. DEXAMETHASONE. [Concomitant]
     Active Substance: DEXAMETHASONE
     Indication: ANTIALLERGIC THERAPY
     Route: 048
     Dates: start: 20160902, end: 20160902
  62. TROPISETRON HYDROCHLORIDE [Concomitant]
     Active Substance: TROPISETRON HYDROCHLORIDE
     Indication: VOMITING
     Route: 042
     Dates: start: 20160902, end: 20160902
  63. DEXAMETHASONE SODIUM PHOSPHATE. [Concomitant]
     Active Substance: DEXAMETHASONE SODIUM PHOSPHATE
     Indication: ANTIALLERGIC THERAPY
     Route: 042
     Dates: start: 20160708, end: 20160708
  64. DEXAMETHASONE SODIUM PHOSPHATE. [Concomitant]
     Active Substance: DEXAMETHASONE SODIUM PHOSPHATE
     Indication: ANTIALLERGIC THERAPY
     Route: 042
     Dates: start: 20160930, end: 20160930
  65. CIMETIDINE [Concomitant]
     Active Substance: CIMETIDINE
     Indication: GASTRIC PH DECREASED
     Route: 042
     Dates: start: 20160805, end: 20160805
  66. CIMETIDINE [Concomitant]
     Active Substance: CIMETIDINE
     Indication: GASTRIC PH DECREASED
     Route: 042
     Dates: start: 20160923, end: 20160923
  67. DIPHENHYDRAMINE HYDROCHLORIDE. [Concomitant]
     Active Substance: DIPHENHYDRAMINE HYDROCHLORIDE
     Indication: ANTIALLERGIC THERAPY
     Route: 030
     Dates: start: 20160603, end: 20160603
  68. AZD2281 [Suspect]
     Active Substance: OLAPARIB
     Indication: NEOPLASM
     Route: 048
     Dates: start: 20160523, end: 20160523
  69. PACLITAXEL. [Suspect]
     Active Substance: PACLITAXEL
     Indication: NEOPLASM
     Route: 042
     Dates: start: 20160624, end: 20160624
  70. DEXAMETHASONE. [Concomitant]
     Active Substance: DEXAMETHASONE
     Indication: ANTIALLERGIC THERAPY
     Route: 048
     Dates: start: 20160805, end: 20160805
  71. CIMETIDINE [Concomitant]
     Active Substance: CIMETIDINE
     Indication: ANTIALLERGIC THERAPY
     Route: 042
     Dates: start: 20160715, end: 20160715
  72. CIMETIDINE [Concomitant]
     Active Substance: CIMETIDINE
     Indication: GASTRIC PH DECREASED
     Route: 042
     Dates: start: 20160715, end: 20160715
  73. CIMETIDINE [Concomitant]
     Active Substance: CIMETIDINE
     Indication: ANTIALLERGIC THERAPY
     Route: 042
     Dates: start: 20160819, end: 20160819
  74. CIMETIDINE [Concomitant]
     Active Substance: CIMETIDINE
     Indication: GASTRIC PH DECREASED
     Route: 042
     Dates: start: 20160819, end: 20160819
  75. CIMETIDINE [Concomitant]
     Active Substance: CIMETIDINE
     Indication: GASTRIC PH DECREASED
     Route: 042
     Dates: start: 20160902, end: 20160902
  76. CIMETIDINE [Concomitant]
     Active Substance: CIMETIDINE
     Indication: ANTIALLERGIC THERAPY
     Route: 042
     Dates: start: 20160930, end: 20160930
  77. DIPHENHYDRAMINE HYDROCHLORIDE. [Concomitant]
     Active Substance: DIPHENHYDRAMINE HYDROCHLORIDE
     Indication: ANTIALLERGIC THERAPY
     Route: 030
     Dates: start: 20160617, end: 20160617
  78. DIPHENHYDRAMINE HYDROCHLORIDE. [Concomitant]
     Active Substance: DIPHENHYDRAMINE HYDROCHLORIDE
     Indication: ANTIALLERGIC THERAPY
     Route: 030
     Dates: start: 20160715, end: 20160715
  79. DIPHENHYDRAMINE HYDROCHLORIDE. [Concomitant]
     Active Substance: DIPHENHYDRAMINE HYDROCHLORIDE
     Indication: ANTIALLERGIC THERAPY
     Route: 030
     Dates: start: 20160909, end: 20160909
  80. DEXAMETHASONE. [Concomitant]
     Active Substance: DEXAMETHASONE
     Indication: ANTIALLERGIC THERAPY
     Route: 048
     Dates: start: 20160617, end: 20160617
  81. DEXAMETHASONE. [Concomitant]
     Active Substance: DEXAMETHASONE
     Indication: ANTIALLERGIC THERAPY
     Route: 048
     Dates: start: 20160708, end: 20160708
  82. DEXAMETHASONE. [Concomitant]
     Active Substance: DEXAMETHASONE
     Indication: ANTIALLERGIC THERAPY
     Route: 048
     Dates: start: 20160809, end: 20160809
  83. TROPISETRON HYDROCHLORIDE [Concomitant]
     Active Substance: TROPISETRON HYDROCHLORIDE
     Indication: VOMITING
     Route: 042
     Dates: start: 20160603, end: 20160603
  84. TROPISETRON HYDROCHLORIDE [Concomitant]
     Active Substance: TROPISETRON HYDROCHLORIDE
     Indication: VOMITING
     Route: 042
     Dates: start: 20160923, end: 20160923
  85. DEXAMETHASONE SODIUM PHOSPHATE. [Concomitant]
     Active Substance: DEXAMETHASONE SODIUM PHOSPHATE
     Indication: ANTIALLERGIC THERAPY
     Route: 042
     Dates: start: 20160819, end: 20160819

REACTIONS (1)
  - Alanine aminotransferase increased [Recovered/Resolved]

NARRATIVE: CASE EVENT DATE: 20160811
